FAERS Safety Report 6738116-7 (Version None)
Quarter: 2010Q2

REPORT INFORMATION
  Report Type: 
  Country: None (occurrence: None)
  Receive Date: 20100520
  Receipt Date: 20100512
  Transmission Date: 20101027
  Serious: Yes (Hospitalization)
  Sender: FDA-Public Use
  Company Number: CRC-10-073

PATIENT
  Age: 50 Year
  Sex: Male
  Weight: 118.2074 kg

DRUGS (16)
  1. METFORMIN HYDROCHLORIDE [Suspect]
     Indication: DIABETES MELLITUS
     Dosage: 1000MG 2 IN 1 DAY ORAL
     Route: 048
     Dates: start: 20091027
  2. GLIMEPIRIDE 6MG [Suspect]
     Indication: DIABETES MELLITUS
     Dosage: 6MG 1 IN 1 DAY ORAL
     Route: 048
     Dates: start: 20100222
  3. OMEPRAZOLE [Concomitant]
  4. ATENOLOL [Concomitant]
  5. HYDROCHLOROTHIAZIDE [Concomitant]
  6. ENALAPRIL [Concomitant]
  7. SIMVASTATIN [Concomitant]
  8. LEVOTHYROXINE SODIUM [Concomitant]
  9. AMLODIPINE [Suspect]
  10. ASPIRIN [Concomitant]
  11. GLIMEPIRIDE [Concomitant]
  12. PROTONIX [Concomitant]
  13. OXYCONTIN [Concomitant]
  14. HYDROCODONE BITARTRATE + ACETAMINOPHEN [Concomitant]
  15. GLYBURIDE [Concomitant]
  16. DIAZEPAM [Concomitant]

REACTIONS (6)
  - ALTERED STATE OF CONSCIOUSNESS [None]
  - AMNESIA [None]
  - CONFUSIONAL STATE [None]
  - MYOCLONUS [None]
  - SOMNOLENCE [None]
  - TREATMENT NONCOMPLIANCE [None]
